FAERS Safety Report 5758155-2 (Version None)
Quarter: 2008Q2

REPORT INFORMATION
  Report Type: 
  Country: None (occurrence: None)
  Receive Date: 20080530
  Receipt Date: 20061201
  Transmission Date: 20081010
  Serious: Yes (Life-Threatening, Hospitalization)
  Sender: FDA-Public Use
  Company Number: MK-6028297

PATIENT
  Age: 24 Year
  Sex: Female

DRUGS (7)
  1. SERTRALINE [Suspect]
     Indication: DRUG USE FOR UNKNOWN INDICATION
  2. CLOZARIL [Suspect]
     Indication: SCHIZOPHRENIA
     Dosage: 1000 MG; ORAL, 700 MG; ORAL; 10_NULL_NULL, 1000 MG;
     Route: 048
     Dates: start: 20030623, end: 20060504
  3. CLOZARIL [Suspect]
     Indication: SCHIZOPHRENIA
     Dosage: 1000 MG; ORAL, 700 MG; ORAL; 10_NULL_NULL, 1000 MG;
     Route: 048
  4. AMOXICILLIN [Suspect]
     Indication: DRUG USE FOR UNKNOWN INDICATION
  5. HYOSCINE HBR HYT [Suspect]
     Indication: DRUG USE FOR UNKNOWN INDICATION
  6. MOCLOBEMIDE (MOCLOBEMIDE) [Concomitant]
  7. SULPIRIDE (SULPIRIDE) [Concomitant]

REACTIONS (5)
  - LIVER FUNCTION TEST ABNORMAL [None]
  - LOSS OF CONSCIOUSNESS [None]
  - OVERDOSE [None]
  - VOMITING [None]
  - WEIGHT DECREASED [None]
